FAERS Safety Report 24068594 (Version 1)
Quarter: 2024Q3

REPORT INFORMATION
  Report Type: Spontaneous
  Country: CA (occurrence: CA)
  Receive Date: 20240710
  Receipt Date: 20240710
  Transmission Date: 20241016
  Serious: No
  Sender: ROCHE
  Company Number: CA-ROCHE-3502761

PATIENT

DRUGS (3)
  1. VABYSMO [Suspect]
     Active Substance: FARICIMAB\FARICIMAB-SVOA
     Indication: Product used for unknown indication
     Route: 065
  2. EYLEA [Concomitant]
     Active Substance: AFLIBERCEPT
     Dates: start: 2015
  3. LUCENTIS [Concomitant]
     Active Substance: RANIBIZUMAB
     Dates: start: 2015

REACTIONS (1)
  - Uveitis [Unknown]
